FAERS Safety Report 15894257 (Version 3)
Quarter: 2019Q1

REPORT INFORMATION
  Report Type: Spontaneous
  Country: TJ (occurrence: TJ)
  Receive Date: 20190131
  Receipt Date: 20190228
  Transmission Date: 20190417
  Serious: Yes (Other)
  Sender: FDA-Public Use
  Company Number: TJ-ROCHE-2251854

PATIENT

DRUGS (1)
  1. BEVACIZUMAB. [Suspect]
     Active Substance: BEVACIZUMAB
     Indication: RETINAL DISORDER
     Route: 050

REACTIONS (4)
  - Intentional product use issue [Unknown]
  - Off label use [Unknown]
  - Suspected counterfeit product [Unknown]
  - Toxic anterior segment syndrome [Unknown]

NARRATIVE: CASE EVENT DATE: 201901
